FAERS Safety Report 9373834 (Version 1)
Quarter: 2013Q2

REPORT INFORMATION
  Report Type: Spontaneous
  Country: NL (occurrence: NL)
  Receive Date: 20130628
  Receipt Date: 20130628
  Transmission Date: 20140414
  Serious: Yes (Other)
  Sender: FDA-Public Use
  Company Number: NL-ROCHE-1242173

PATIENT
  Age: 38 Year
  Sex: Female
  Weight: 91 kg

DRUGS (4)
  1. XOLAIR [Suspect]
     Indication: ASTHMA
     Route: 058
     Dates: end: 20130404
  2. SYMBICORT [Concomitant]
  3. SALBUTAMOL [Concomitant]
  4. OMEPRAZOLE [Concomitant]

REACTIONS (1)
  - Dermatitis allergic [Recovered/Resolved]
